FAERS Safety Report 11195289 (Version 1)
Quarter: 2015Q2

REPORT INFORMATION
  Report Type: Spontaneous
  Country: US (occurrence: None)
  Receive Date: 20150615
  Receipt Date: 20150615
  Transmission Date: 20150821
  Serious: Yes (Other)
  Sender: FDA-Public Use
  Company Number: BR15-146-AE

PATIENT
  Age: 52 Year
  Sex: Female

DRUGS (2)
  1. PRESCRIPTION MEDICATIONS [Concomitant]
  2. BUPRENORPHINE HCI /NALOXONE HCL DIHYDRATE [Suspect]
     Active Substance: BUPRENORPHINE\NALOXONE

REACTIONS (1)
  - Intentional overdose [None]
